FAERS Safety Report 19653887 (Version 3)
Quarter: 2022Q1

REPORT INFORMATION
  Report Type: Report from Study
  Country: FR (occurrence: FR)
  Receive Date: 20210804
  Receipt Date: 20220309
  Transmission Date: 20220423
  Serious: Yes (Hospitalization, Other)
  Sender: FDA-Public Use
  Company Number: FR-AMGEN-FRACT2021117728

PATIENT
  Age: 73 Year
  Sex: Male
  Weight: 61 kg

DRUGS (15)
  1. PANITUMUMAB [Suspect]
     Active Substance: PANITUMUMAB
     Indication: Colorectal cancer metastatic
     Dosage: 350 MILLIGRAM (CUMULATIVE DOSE WAS 1420 MG)
     Route: 042
     Dates: start: 20210415, end: 20210715
  2. FLUOROURACIL [Suspect]
     Active Substance: FLUOROURACIL
     Indication: Colorectal cancer metastatic
     Dosage: 4000 MILLIGRAM (CUMULATIVE DOSE WAS 16400 MG)
     Route: 042
     Dates: start: 20210415, end: 20210715
  3. FLUOROURACIL [Suspect]
     Active Substance: FLUOROURACIL
     Dosage: 680 MILLIGRAM (CUMULATIVE DOSE WAS 2720 MG)
     Route: 040
     Dates: start: 20210415, end: 20210715
  4. LEUCOVORIN CALCIUM [Suspect]
     Active Substance: LEUCOVORIN CALCIUM
     Indication: Colorectal cancer metastatic
     Dosage: 340 MILLIGRAM (CUMULATIVE DOSE WAS 1364 MG)
     Route: 042
     Dates: start: 20210415, end: 20210715
  5. IRINOTECAN [Suspect]
     Active Substance: IRINOTECAN
     Indication: Colorectal cancer metastatic
     Dosage: 190 MILLIGRAM (CUMULATIVE DOSE WAS 830 MG)
     Route: 042
     Dates: start: 20210415, end: 20210715
  6. ELOXATIN [Suspect]
     Active Substance: OXALIPLATIN
     Indication: Colorectal cancer metastatic
     Dosage: 110 MILLIGRAM (CUMULATIVE DOSE WAS 475 MG)
     Route: 042
     Dates: start: 20210415, end: 20210715
  7. DOXYCYCLINE [Concomitant]
     Active Substance: DOXYCYCLINE
     Indication: Prophylaxis
     Dosage: 100 MILLIGRAM
     Route: 048
     Dates: start: 20210415
  8. IMODIUM [Concomitant]
     Active Substance: LOPERAMIDE HYDROCHLORIDE
     Indication: Diarrhoea
     Dosage: 2 CAPSULES FOR DIARRHOEA AND 1 CAPSULE FOR EACH LOOSE STOOL (MAX. 8 CAPSULES/DAY).
     Route: 048
  9. PRIMPERAN [Concomitant]
     Active Substance: METOCLOPRAMIDE HYDROCHLORIDE
     Indication: Nausea
     Dosage: 10 MILLIGRAM, TID
     Route: 048
  10. PRIMPERAN [Concomitant]
     Active Substance: METOCLOPRAMIDE HYDROCHLORIDE
     Indication: Vomiting
  11. ACETAMINOPHEN [Concomitant]
     Active Substance: ACETAMINOPHEN
     Indication: Pain
     Dosage: 1000 MILLIGRAM, Q8H
     Route: 048
  12. SODIUM BICARBONATE [Concomitant]
     Active Substance: SODIUM BICARBONATE
     Dosage: 14/1000: 1 MOUTH WASH 3X/DAY (AFTER EACH MEAL)
     Route: 002
  13. GLYCERIN\MINERAL OIL\PETROLATUM [Concomitant]
     Active Substance: GLYCERIN\MINERAL OIL\PETROLATUM
     Dosage: UNK UNK, QD
  14. DIPROSONE [Concomitant]
     Active Substance: BETAMETHASONE DIPROPIONATE
     Indication: Skin lesion
     Dosage: UNK UNK, QD
  15. DIPROSONE [Concomitant]
     Active Substance: BETAMETHASONE DIPROPIONATE
     Indication: Dermatitis acneiform

REACTIONS (1)
  - Malnutrition [Recovered/Resolved]

NARRATIVE: CASE EVENT DATE: 20210726
